FAERS Safety Report 23969170 (Version 2)
Quarter: 2024Q2

REPORT INFORMATION
  Report Type: Spontaneous
  Country: FR (occurrence: FR)
  Receive Date: 20240612
  Receipt Date: 20240630
  Transmission Date: 20240716
  Serious: Yes (Hospitalization, Other)
  Sender: FDA-Public Use
  Company Number: FR-ETHYPHARM-2024001436

PATIENT
  Age: 18 Year
  Sex: Female

DRUGS (2)
  1. ACETAMINOPHEN [Suspect]
     Active Substance: ACETAMINOPHEN
     Indication: Overdose
     Dosage: UNK
     Route: 065
  2. ACETAMINOPHEN [Suspect]
     Active Substance: ACETAMINOPHEN
     Indication: Hyperthermia

REACTIONS (4)
  - Metabolic acidosis [Recovered/Resolved]
  - Maternal exposure during pregnancy [Recovered/Resolved]
  - Toxicity to various agents [Recovered/Resolved]
  - Pyroglutamic acidosis [Recovered/Resolved]
